FAERS Safety Report 24351537 (Version 1)
Quarter: 2024Q3

REPORT INFORMATION
  Report Type: Spontaneous
  Country: US (occurrence: US)
  Receive Date: 20240923
  Receipt Date: 20240923
  Transmission Date: 20241016
  Serious: No
  Sender: REVANCE THERAPEUTICS
  Company Number: US-REVANCE THERAPEUTICS INC.-US-REV-2024-000411

PATIENT

DRUGS (1)
  1. DAXIBOTULINUMTOXIN A-LANM [Suspect]
     Active Substance: DAXIBOTULINUMTOXIN A-LANM
     Indication: Skin wrinkling
     Dosage: 50 U (2 U DEPRESSOR OF NOSE, 22 U FOREHEAD (FRONTALIS), 10 U GLABELLA, 8 U RHYTIDS, 10 U LATERAL CAN
     Route: 065
     Dates: start: 20240721

REACTIONS (4)
  - Injection site urticaria [Not Recovered/Not Resolved]
  - Injection site swelling [Unknown]
  - Underdose [Unknown]
  - Off label use [Unknown]

NARRATIVE: CASE EVENT DATE: 20240701
